FAERS Safety Report 4891873-7 (Version None)
Quarter: 2006Q1

REPORT INFORMATION
  Report Type: 
  Country: None (occurrence: None)
  Receive Date: 20060124
  Receipt Date: 20060116
  Transmission Date: 20060701
  Serious: Yes (Hospitalization)
  Sender: FDA-Public Use
  Company Number: 200513128BWH

PATIENT
  Age: 81 Year
  Sex: Male
  Weight: 87.5442 kg

DRUGS (26)
  1. SORAFENIB [Suspect]
     Indication: METASTATIC RENAL CELL CARCINOMA
     Dosage: 400 MG, QD, ORAL
     Route: 048
     Dates: start: 20050822
  2. LIPITOR [Concomitant]
  3. GLUCOSAMINE [Concomitant]
  4. OSCAL [Concomitant]
  5. GLUCOTROL [Concomitant]
  6. COMBIVENT [Concomitant]
  7. ALBUTEROL [Concomitant]
  8. COUMADIN [Concomitant]
  9. ARANESP [Concomitant]
  10. CARDIZEM CD [Concomitant]
  11. COLACE [Concomitant]
  12. NORCO [Concomitant]
  13. PREDNISONE [Concomitant]
  14. PRILOSEC [Concomitant]
  15. CARDIZEM [Concomitant]
  16. DIGOXIN [Concomitant]
  17. LASIX [Concomitant]
  18. ZITHROMAX [Concomitant]
  19. FLOMAX [Concomitant]
  20. PRAVACHOL [Concomitant]
  21. THALIDOMIDE [Concomitant]
  22. ACTONEL [Concomitant]
  23. K-DUR 10 [Concomitant]
  24. DILTIAZEM HCL [Concomitant]
  25. ADVAIR DISKUS 100/50 [Concomitant]
  26. PRILOSEC [Concomitant]

REACTIONS (16)
  - ANOREXIA [None]
  - ASTHENIA [None]
  - ATRIAL FLUTTER [None]
  - BLOOD CREATININE INCREASED [None]
  - BLOOD UREA INCREASED [None]
  - BRONCHOSPASM [None]
  - DYSPHAGIA [None]
  - ELECTROCARDIOGRAM ST-T CHANGE [None]
  - HAEMOGLOBIN DECREASED [None]
  - HEART RATE INCREASED [None]
  - HERPES SIMPLEX [None]
  - HERPES ZOSTER [None]
  - HYPOGLYCAEMIA [None]
  - METASTASES TO LUNG [None]
  - PLEURAL EFFUSION [None]
  - VENTRICULAR EXTRASYSTOLES [None]
